FAERS Safety Report 7758507-5 (Version None)
Quarter: 2011Q3

REPORT INFORMATION
  Report Type: 
  Country: None (occurrence: None)
  Receive Date: 20110914
  Receipt Date: 20110905
  Transmission Date: 20111222
  Serious: Yes (Other)
  Sender: FDA-Public Use
  Company Number: 2011SP041924

PATIENT
  Age: 61 Year
  Sex: Female
  Weight: 60.5 kg

DRUGS (13)
  1. VOLTAREN [Concomitant]
  2. MELYSIN [Concomitant]
  3. BLADDERON [Concomitant]
  4. REBETOL [Suspect]
     Indication: HEPATITIS C
     Dosage: 400 MG;BID;PO
     Route: 048
     Dates: start: 20100324
  5. INTERFERON BETA NOS [Suspect]
     Indication: HEPATITIS C
     Dosage: 6 MIU;QD;INDRP 6 MIU;QD;IV 3 MIU; 6 MIU;QD;IV 3 MIU;QD;IV 6 MIU;TIW;IV
     Route: 042
     Dates: start: 20100324, end: 20100330
  6. INTERFERON BETA NOS [Suspect]
     Indication: HEPATITIS C
     Dosage: 6 MIU;QD;INDRP 6 MIU;QD;IV 3 MIU; 6 MIU;QD;IV 3 MIU;QD;IV 6 MIU;TIW;IV
     Route: 042
     Dates: start: 20100331, end: 20100402
  7. INTERFERON BETA NOS [Suspect]
     Indication: HEPATITIS C
     Dosage: 6 MIU;QD;INDRP 6 MIU;QD;IV 3 MIU; 6 MIU;QD;IV 3 MIU;QD;IV 6 MIU;TIW;IV
     Route: 042
     Dates: start: 20100418, end: 20100419
  8. INTERFERON BETA NOS [Suspect]
     Indication: HEPATITIS C
     Dosage: 6 MIU;QD;INDRP 6 MIU;QD;IV 3 MIU; 6 MIU;QD;IV 3 MIU;QD;IV 6 MIU;TIW;IV
     Route: 042
     Dates: start: 20100413, end: 20100417
  9. INTERFERON BETA NOS [Suspect]
     Indication: HEPATITIS C
     Dosage: 6 MIU;QD;INDRP 6 MIU;QD;IV 3 MIU; 6 MIU;QD;IV 3 MIU;QD;IV 6 MIU;TIW;IV
     Route: 042
     Dates: start: 20100404, end: 20100412
  10. INTERFERON BETA NOS [Suspect]
     Indication: HEPATITIS C
     Dosage: 6 MIU;QD;INDRP 6 MIU;QD;IV 3 MIU; 6 MIU;QD;IV 3 MIU;QD;IV 6 MIU;TIW;IV
     Route: 042
     Dates: start: 20100421
  11. LEXOTAN [Concomitant]
  12. ZOLPIDEM [Concomitant]
  13. MARZULENE S (AZULENE SULFONATE SODIUM/L-GLUTAMINE) [Concomitant]

REACTIONS (3)
  - NEUTROPHIL COUNT DECREASED [None]
  - NEPHROTIC SYNDROME [None]
  - PROTEINURIA [None]
